FAERS Safety Report 24927679 (Version 1)
Quarter: 2025Q1

REPORT INFORMATION
  Report Type: Spontaneous
  Country: JP (occurrence: JP)
  Receive Date: 20250205
  Receipt Date: 20250205
  Transmission Date: 20250408
  Serious: Yes (Death)
  Sender: SANOFI AVENTIS
  Company Number: JP-SA-2025SA034713

PATIENT
  Age: 60 Year
  Sex: Male

DRUGS (3)
  1. REZUROCK [Suspect]
     Active Substance: BELUMOSUDIL
     Indication: Chronic graft versus host disease
     Route: 048
     Dates: start: 20241220, end: 20250114
  2. RUXOLITINIB [Concomitant]
     Active Substance: RUXOLITINIB
     Indication: Chronic graft versus host disease
     Dosage: 20 MG, QD
     Route: 048
     Dates: start: 20250114
  3. PREDNISOLONE [Concomitant]
     Active Substance: PREDNISOLONE
     Indication: Chronic graft versus host disease
     Dosage: 10 MG, QD
     Route: 048
     Dates: start: 20250114

REACTIONS (1)
  - Death [Fatal]

NARRATIVE: CASE EVENT DATE: 20250114
